FAERS Safety Report 25497897 (Version 3)
Quarter: 2025Q4

REPORT INFORMATION
  Report Type: Report from Study
  Country: BR (occurrence: BR)
  Receive Date: 20250701
  Receipt Date: 20251216
  Transmission Date: 20260118
  Serious: Yes (Other)
  Sender: TAKEDA
  Company Number: BR-TAKEDA-2025TUS059272

PATIENT
  Age: 35 Year
  Sex: Female

DRUGS (1)
  1. VEDOLIZUMAB [Suspect]
     Active Substance: VEDOLIZUMAB
     Indication: Colitis ulcerative
     Dosage: 300 MILLIGRAM, Q4WEEKS
     Dates: start: 20220125

REACTIONS (2)
  - Influenza [Unknown]
  - Inappropriate schedule of product administration [Recovered/Resolved]
